FAERS Safety Report 9225622 (Version 1)
Quarter: 2013Q2

REPORT INFORMATION
  Report Type: Spontaneous
  Country: US (occurrence: None)
  Receive Date: 20130410
  Receipt Date: 20130410
  Transmission Date: 20140414
  Serious: Yes (Other)
  Sender: FDA-Public Use
  Company Number: None

PATIENT
  Age: 51 Year
  Sex: Male
  Weight: 117.3 kg

DRUGS (1)
  1. GEMCITABINE [Suspect]
     Indication: BLADDER CANCER
     Dosage: GEMCITABINE 2100MG DAY 1 + 8 Q21D IV
     Route: 042
     Dates: start: 20130312

REACTIONS (1)
  - Infusion site pain [None]
